FAERS Safety Report 8213202-3 (Version None)
Quarter: 2012Q1

REPORT INFORMATION
  Report Type: 
  Country: None (occurrence: None)
  Receive Date: 20120315
  Receipt Date: 20120309
  Transmission Date: 20120608
  Serious: Yes (Hospitalization, Other)
  Sender: FDA-Public Use
  Company Number: BR-ABBOTT-12P-020-0913560-00

PATIENT
  Sex: Female

DRUGS (5)
  1. WARFARIN SODIUM [Concomitant]
     Indication: PROPHYLAXIS
  2. HUMIRA [Suspect]
     Indication: RHEUMATOID ARTHRITIS
     Route: 058
     Dates: start: 20080101
  3. TORSILAX [Concomitant]
     Indication: PAIN
     Dosage: CARISOPRODOL, PARACETAMOL, DICLOFENAC SODIUM, CAFFEINE ANHYDROUS
     Route: 048
  4. WARFARIN SODIUM [Concomitant]
     Indication: PULMONARY EMBOLISM
     Dosage: 1 TABLET DAILY
     Route: 048
     Dates: end: 20110201
  5. CALCIUM CARBONATE [Concomitant]
     Indication: BONE DISORDER
     Dosage: 1 TABLET DAILY
     Route: 048

REACTIONS (6)
  - DENGUE FEVER [None]
  - WEIGHT DECREASED [None]
  - HYPOPHAGIA [None]
  - GAIT DISTURBANCE [None]
  - PULMONARY EMBOLISM [None]
  - LOWER LIMB FRACTURE [None]
